FAERS Safety Report 9647763 (Version 1)
Quarter: 2013Q4

REPORT INFORMATION
  Report Type: Spontaneous
  Country: JP (occurrence: JP)
  Receive Date: 20131028
  Receipt Date: 20131028
  Transmission Date: 20140711
  Serious: Yes (Hospitalization)
  Sender: FDA-Public Use
  Company Number: JP-009507513-1310JPN010901

PATIENT
  Age: 70 Year
  Sex: Female

DRUGS (2)
  1. BONALON [Suspect]
     Indication: OSTEOPOROSIS
     Route: 048
  2. THYRADIN [Concomitant]
     Indication: HYPOTHYROIDISM

REACTIONS (1)
  - Femur fracture [Unknown]
